FAERS Safety Report 22178523 (Version 2)
Quarter: 2023Q2

REPORT INFORMATION
  Report Type: Spontaneous
  Country: BR (occurrence: BR)
  Receive Date: 20230405
  Receipt Date: 20230616
  Transmission Date: 20230722
  Serious: Yes (Death, Other)
  Sender: FDA-Public Use
  Company Number: BR-BoehringerIngelheim-2023-BI-229783

PATIENT
  Age: 62 Year
  Sex: Female
  Weight: 110 kg

DRUGS (1)
  1. LINAGLIPTIN [Suspect]
     Active Substance: LINAGLIPTIN
     Indication: Type 2 diabetes mellitus
     Dosage: 1 TABLET IN THE MORNING AND 1 TABLET AT DINNER
     Route: 048
     Dates: end: 2022

REACTIONS (1)
  - Cervix carcinoma [Fatal]

NARRATIVE: CASE EVENT DATE: 20220101
